FAERS Safety Report 14829368 (Version 2)
Quarter: 2019Q2

REPORT INFORMATION
  Report Type: Spontaneous
  Country: US (occurrence: US)
  Receive Date: 20180430
  Receipt Date: 20190422
  Transmission Date: 20190711
  Serious: Yes (Other)
  Sender: FDA-Public Use
  Company Number: US-ASTRAZENECA-2018SE50440

PATIENT
  Age: 21312 Day
  Sex: Female

DRUGS (41)
  1. VIMOVO [Suspect]
     Active Substance: ESOMEPRAZOLE MAGNESIUM\NAPROXEN
     Route: 048
     Dates: start: 2001, end: 2016
  2. PRILOSEC [Suspect]
     Active Substance: OMEPRAZOLE MAGNESIUM
     Indication: GASTROOESOPHAGEAL REFLUX DISEASE
     Route: 048
     Dates: start: 1998, end: 2016
  3. PRILOSEC [Suspect]
     Active Substance: OMEPRAZOLE MAGNESIUM
     Indication: OESOPHAGITIS
     Route: 048
     Dates: start: 1998, end: 2016
  4. PRILOSEC OTC [Suspect]
     Active Substance: OMEPRAZOLE MAGNESIUM
     Route: 048
     Dates: start: 2001, end: 2016
  5. CARVEDILOL. [Concomitant]
     Active Substance: CARVEDILOL
  6. PROTONIX [Suspect]
     Active Substance: PANTOPRAZOLE SODIUM
     Indication: GASTROOESOPHAGEAL REFLUX DISEASE
     Route: 065
     Dates: start: 1998, end: 2016
  7. ACIPHEX [Suspect]
     Active Substance: RABEPRAZOLE SODIUM
     Indication: GASTROOESOPHAGEAL REFLUX DISEASE
     Route: 065
     Dates: start: 1998, end: 2016
  8. ACIPHEX [Suspect]
     Active Substance: RABEPRAZOLE SODIUM
     Indication: GASTROOESOPHAGEAL REFLUX DISEASE
     Route: 048
     Dates: start: 20030120
  9. AMLODIPINE [Concomitant]
     Active Substance: AMLODIPINE BESYLATE
  10. MYLANTA [Concomitant]
     Active Substance: ALUMINUM HYDROXIDE\DIMETHICONE\MAGNESIUM HYDROXIDE
  11. NEXIUM [Suspect]
     Active Substance: ESOMEPRAZOLE MAGNESIUM
     Route: 048
     Dates: start: 2001, end: 2016
  12. PROTONIX [Suspect]
     Active Substance: PANTOPRAZOLE SODIUM
     Indication: OESOPHAGITIS
     Route: 065
     Dates: start: 1998, end: 2016
  13. METFORMIN [Concomitant]
     Active Substance: METFORMIN HYDROCHLORIDE
  14. MELOXICAM. [Concomitant]
     Active Substance: MELOXICAM
  15. GLIPIZIDE. [Concomitant]
     Active Substance: GLIPIZIDE
  16. FUROSEMIDE. [Concomitant]
     Active Substance: FUROSEMIDE
  17. SPIRONOLACTONE. [Concomitant]
     Active Substance: SPIRONOLACTONE
  18. PEPTO-BISMOL [Concomitant]
     Active Substance: BISMUTH SUBSALICYLATE
  19. MILK OF MAGNESIA [Concomitant]
     Active Substance: MAGNESIUM HYDROXIDE
  20. PRILOSEC [Suspect]
     Active Substance: OMEPRAZOLE MAGNESIUM
     Indication: OESOPHAGITIS
     Route: 048
     Dates: start: 19990129
  21. PROTONIX [Suspect]
     Active Substance: PANTOPRAZOLE SODIUM
     Indication: GASTROOESOPHAGEAL REFLUX DISEASE
     Route: 048
     Dates: start: 20130207
  22. PREVACID [Suspect]
     Active Substance: LANSOPRAZOLE
     Route: 065
     Dates: start: 2001, end: 2016
  23. CLOPIDOGREL [Concomitant]
     Active Substance: CLOPIDOGREL BISULFATE
  24. ALBUTEROL. [Concomitant]
     Active Substance: ALBUTEROL
  25. ALKA-SELTZER [Concomitant]
     Active Substance: ANHYDROUS CITRIC ACID\ASPIRIN\SODIUM BICARBONATE
  26. PRILOSEC [Suspect]
     Active Substance: OMEPRAZOLE MAGNESIUM
     Indication: GASTROOESOPHAGEAL REFLUX DISEASE
     Route: 048
     Dates: start: 2001, end: 2016
  27. PRILOSEC [Suspect]
     Active Substance: OMEPRAZOLE MAGNESIUM
     Indication: OESOPHAGITIS
     Route: 048
     Dates: start: 2001, end: 2016
  28. DEXILANT [Suspect]
     Active Substance: DEXLANSOPRAZOLE
     Route: 065
     Dates: start: 2001, end: 2016
  29. PROTONIX [Suspect]
     Active Substance: PANTOPRAZOLE SODIUM
     Indication: GASTROOESOPHAGEAL REFLUX DISEASE
     Route: 065
     Dates: start: 2001, end: 2016
  30. PROTONIX [Suspect]
     Active Substance: PANTOPRAZOLE SODIUM
     Indication: OESOPHAGITIS
     Route: 065
     Dates: start: 2001, end: 2016
  31. PROTONIX [Suspect]
     Active Substance: PANTOPRAZOLE SODIUM
     Indication: OESOPHAGITIS
     Route: 048
     Dates: start: 20130207
  32. TUMS [Concomitant]
     Active Substance: CALCIUM CARBONATE
  33. NEXIUM 24HR [Suspect]
     Active Substance: ESOMEPRAZOLE MAGNESIUM
     Route: 048
     Dates: start: 2001, end: 2016
  34. PRILOSEC [Suspect]
     Active Substance: OMEPRAZOLE MAGNESIUM
     Indication: GASTROOESOPHAGEAL REFLUX DISEASE
     Route: 048
     Dates: start: 19990129
  35. ACIPHEX [Suspect]
     Active Substance: RABEPRAZOLE SODIUM
     Indication: OESOPHAGITIS
     Route: 065
     Dates: start: 1998, end: 2016
  36. ACIPHEX [Suspect]
     Active Substance: RABEPRAZOLE SODIUM
     Indication: OESOPHAGITIS
     Route: 048
     Dates: start: 20030120
  37. PREVACID 24 HR [Suspect]
     Active Substance: LANSOPRAZOLE
     Route: 065
     Dates: start: 2001, end: 2016
  38. ACIPHEX [Suspect]
     Active Substance: RABEPRAZOLE SODIUM
     Indication: GASTROOESOPHAGEAL REFLUX DISEASE
     Route: 065
     Dates: start: 2001, end: 2016
  39. ACIPHEX [Suspect]
     Active Substance: RABEPRAZOLE SODIUM
     Indication: OESOPHAGITIS
     Route: 065
     Dates: start: 2001, end: 2016
  40. IBUPROFEN. [Concomitant]
     Active Substance: IBUPROFEN
  41. ROLAIDS [Concomitant]
     Active Substance: CALCIUM CARBONATE\MAGNESIUM HYDROXIDE

REACTIONS (1)
  - Chronic kidney disease [Not Recovered/Not Resolved]

NARRATIVE: CASE EVENT DATE: 20130603
